FAERS Safety Report 6527827-4 (Version None)
Quarter: 2010Q1

REPORT INFORMATION
  Report Type: 
  Country: None (occurrence: None)
  Receive Date: 20100106
  Receipt Date: 20091228
  Transmission Date: 20100710
  Serious: Yes (Other)
  Sender: FDA-Public Use
  Company Number: US-BAYER-200926162NA

PATIENT
  Age: 59 Year
  Sex: Female

DRUGS (2)
  1. BETASERON [Suspect]
     Indication: MULTIPLE SCLEROSIS
     Dosage: TOTAL DAILY DOSE: 8 MIU
     Route: 058
     Dates: start: 20060928
  2. DEPAKOTE [Concomitant]
     Indication: BIPOLAR DISORDER

REACTIONS (2)
  - PERFORMANCE STATUS DECREASED [None]
  - SOMNOLENCE [None]
